FAERS Safety Report 4730545-6 (Version None)
Quarter: 2005Q3

REPORT INFORMATION
  Report Type: 
  Country: None (occurrence: None)
  Receive Date: 20050725
  Receipt Date: 20050216
  Transmission Date: 20060218
  Serious: No
  Sender: FDA-Public Use
  Company Number: USA050290940

PATIENT
  Age: 9 Year
  Sex: Male
  Weight: 26 kg

DRUGS (2)
  1. STRATTERA [Suspect]
     Indication: ATTENTION DEFICIT/HYPERACTIVITY DISORDER
     Dosage: 25 MG/1 DAY
     Dates: start: 20040101
  2. SINGULAIR [Concomitant]

REACTIONS (4)
  - COMMUNICATION DISORDER [None]
  - IMPULSIVE BEHAVIOUR [None]
  - LOGORRHOEA [None]
  - RESTLESSNESS [None]
